FAERS Safety Report 6904654-7 (Version None)
Quarter: 2010Q3

REPORT INFORMATION
  Report Type: 
  Country: None (occurrence: None)
  Receive Date: 20100804
  Receipt Date: 20090630
  Transmission Date: 20110219
  Serious: Yes (Other)
  Sender: FDA-Public Use
  Company Number: US-PFIZER INC-2009174637

PATIENT
  Sex: Female
  Weight: 156.03 kg

DRUGS (6)
  1. LYRICA [Suspect]
  2. HYDROCHLOROTHIAZIDE [Concomitant]
     Dosage: UNK
  3. LISINOPRIL [Concomitant]
     Dosage: UNK
  4. XANAX [Concomitant]
     Dosage: UNK
  5. AMBIEN [Concomitant]
     Dosage: UNK
  6. SITAGLIPTIN [Concomitant]

REACTIONS (2)
  - ANGIOEDEMA [None]
  - RESTLESSNESS [None]
